FAERS Safety Report 9411668 (Version 1)
Quarter: 2013Q3

REPORT INFORMATION
  Report Type: Spontaneous
  Country: US (occurrence: US)
  Receive Date: 20130722
  Receipt Date: 20130722
  Transmission Date: 20140515
  Serious: Yes (Other)
  Sender: FDA-Public Use
  Company Number: US-BAYER-2013-085928

PATIENT
  Sex: Female
  Weight: 77.1 kg

DRUGS (1)
  1. MIRENA [Suspect]
     Indication: CONTRACEPTION
     Dosage: 20 ?G/D, CONT
     Route: 015
     Dates: start: 200805, end: 20120501

REACTIONS (26)
  - Mood swings [None]
  - Anger [None]
  - Alopecia [None]
  - Loss of libido [None]
  - Acne [None]
  - Back pain [None]
  - Anxiety [None]
  - Abdominal pain lower [None]
  - Headache [None]
  - Photophobia [None]
  - Hyperacusis [None]
  - Dizziness [None]
  - Nausea [None]
  - Amnesia [None]
  - Fatigue [None]
  - Feeling abnormal [None]
  - Disturbance in attention [None]
  - Weight increased [None]
  - Thyroid mass [Recovering/Resolving]
  - Chemical poisoning [None]
  - Autoimmune disorder [None]
  - Anaemia [None]
  - Hormone level abnormal [Recovering/Resolving]
  - Progesterone decreased [Recovering/Resolving]
  - Blood oestrogen increased [Recovering/Resolving]
  - Depression [None]
